FAERS Safety Report 8860388 (Version 2)
Quarter: 2012Q4

REPORT INFORMATION
  Report Type: 
  Country: US (occurrence: US)
  Receive Date: 20121025
  Receipt Date: 20121119
  Transmission Date: 20130627
  Serious: Yes (Hospitalization)
  Sender: FDA-Public Use
  Company Number: US-JNJFOC-20121008027

PATIENT
  Age: 91 None
  Sex: Female
  Weight: 38.56 kg

DRUGS (14)
  1. SANDOZ FENTANYL TRANSDERMAL SYSTEM [Suspect]
     Indication: PAIN
     Route: 062
     Dates: start: 2010
  2. SANDOZ FENTANYL TRANSDERMAL SYSTEM [Suspect]
     Indication: PAIN
     Route: 062
     Dates: start: 2010, end: 2012
  3. SANDOZ FENTANYL TRANSDERMAL SYSTEM [Suspect]
     Indication: PAIN
     Route: 062
     Dates: start: 2010, end: 2010
  4. FENTANYL TRANSDERMAL SYSTEM [Suspect]
     Indication: PAIN
     Dosage: 37.5 ug/hr (25 ug/hr + 12.5 ug/hr)
     Route: 062
     Dates: start: 201209
  5. NORCO [Concomitant]
     Route: 065
  6. THYROID [Concomitant]
     Route: 065
  7. METHOTREXATE [Concomitant]
     Indication: RHEUMATOID ARTHRITIS
     Route: 065
  8. MULTIVITAMINS [Concomitant]
     Route: 065
  9. FOLIC ACID [Concomitant]
     Route: 065
  10. CALCIUM [Concomitant]
     Route: 065
  11. IRON [Concomitant]
     Route: 065
  12. BONIVA [Concomitant]
     Route: 065
  13. PREDNISONE [Concomitant]
     Route: 065
  14. LASIX [Concomitant]
     Indication: OEDEMA PERIPHERAL
     Route: 065

REACTIONS (7)
  - Adverse event [Recovered/Resolved]
  - Headache [Recovered/Resolved]
  - Application site irritation [Recovering/Resolving]
  - Application site pain [Recovering/Resolving]
  - Wrong technique in drug usage process [Recovered/Resolved]
  - Inadequate analgesia [Recovered/Resolved]
  - Back pain [Recovering/Resolving]
